FAERS Safety Report 7333944-1 (Version None)
Quarter: 2011Q1

REPORT INFORMATION
  Report Type: 
  Country: None (occurrence: None)
  Receive Date: 20110307
  Receipt Date: 20110225
  Transmission Date: 20110831
  Serious: Yes (Hospitalization)
  Sender: FDA-Public Use
  Company Number: US-BIOGENIDEC-2011BI002706

PATIENT
  Age: 81 Year
  Sex: Female

DRUGS (2)
  1. AVONEX [Suspect]
     Indication: MULTIPLE SCLEROSIS
     Route: 030
     Dates: start: 20060505
  2. AVONEX [Suspect]
     Route: 030
     Dates: start: 20020501, end: 20060201

REACTIONS (1)
  - MULTIPLE SCLEROSIS RELAPSE [None]
